FAERS Safety Report 19254570 (Version 7)
Quarter: 2022Q3

REPORT INFORMATION
  Report Type: Report from Study
  Country: US (occurrence: US)
  Receive Date: 20210513
  Receipt Date: 20220708
  Transmission Date: 20221027
  Serious: No
  Sender: FDA-Public Use
  Company Number: NVSC2021US100717

PATIENT
  Sex: Male

DRUGS (4)
  1. COSENTYX [Suspect]
     Active Substance: SECUKINUMAB
     Indication: Psoriatic arthropathy
     Dosage: 150 MG
     Route: 058
  2. COSENTYX [Suspect]
     Active Substance: SECUKINUMAB
     Dosage: 150 MG, QMO
     Route: 058
  3. COSENTYX [Suspect]
     Active Substance: SECUKINUMAB
     Dosage: 150 MG
     Route: 058
  4. OTEZLA [Concomitant]
     Active Substance: APREMILAST
     Indication: Product used for unknown indication
     Dosage: UNK
     Route: 065

REACTIONS (11)
  - Spinal column injury [Unknown]
  - Limb injury [Unknown]
  - Anxiety [Unknown]
  - Swelling [Unknown]
  - Arthropathy [Unknown]
  - Dysphagia [Recovering/Resolving]
  - Arthritis [Unknown]
  - Scab [Unknown]
  - Condition aggravated [Unknown]
  - Pain [Unknown]
  - Visual impairment [Not Recovered/Not Resolved]
